FAERS Safety Report 19700118 (Version 1)
Quarter: 2021Q3

REPORT INFORMATION
  Report Type: Spontaneous
  Country: US (occurrence: US)
  Receive Date: 20210813
  Receipt Date: 20210813
  Transmission Date: 20211014
  Serious: No
  Sender: FDA-Public Use
  Company Number: US-JNJFOC-20210765520

PATIENT
  Age: 50 Year
  Sex: Female

DRUGS (1)
  1. MENS ROGAINE UNSCENTED FORMULA [Suspect]
     Active Substance: MINOXIDIL
     Indication: ALOPECIA
     Dosage: HALF A CUPFUL
     Route: 065
     Dates: start: 20210530

REACTIONS (5)
  - Overdose [Unknown]
  - Hair texture abnormal [Unknown]
  - Product distribution issue [Unknown]
  - Intentional product misuse [Unknown]
  - Product use issue [Unknown]

NARRATIVE: CASE EVENT DATE: 2021
